FAERS Safety Report 8594255 (Version 3)
Quarter: 2015Q4

REPORT INFORMATION
  Report Type: Spontaneous
  Country: BR (occurrence: BR)
  Receive Date: 20120604
  Receipt Date: 20151130
  Transmission Date: 20160305
  Serious: Yes (Other)
  Sender: FDA-Public Use
  Company Number: BR-PFIZER INC-2012128748

PATIENT
  Age: 78 Year
  Sex: Female
  Weight: 50 kg

DRUGS (2)
  1. XALATAN [Suspect]
     Active Substance: LATANOPROST
     Indication: RETINAL DETACHMENT
  2. XALATAN [Suspect]
     Active Substance: LATANOPROST
     Indication: GLAUCOMA
     Dosage: 1 DROP IN EACH EYE, 1X/DAY
     Route: 047
     Dates: start: 2011

REACTIONS (4)
  - Product use issue [Unknown]
  - Glaucoma [Unknown]
  - Eye infection [Unknown]
  - Cataract [Unknown]

NARRATIVE: CASE EVENT DATE: 2011
